FAERS Safety Report 8602051-X (Version None)
Quarter: 2012Q3

REPORT INFORMATION
  Report Type: 
  Country: None (occurrence: None)
  Receive Date: 20120817
  Receipt Date: 20120808
  Transmission Date: 20120928
  Serious: Yes (Other)
  Sender: FDA-Public Use
  Company Number: US-JNJFOC-20120805769

PATIENT
  Age: 63 Year
  Sex: Female
  Weight: 60.33 kg

DRUGS (2)
  1. REMICADE [Suspect]
     Route: 042
     Dates: start: 20120404
  2. REMICADE [Suspect]
     Indication: RHEUMATOID ARTHRITIS
     Dosage: RECEIVED AT 0, 2, AND 6 WEEK DOSE
     Route: 042
     Dates: start: 20120517, end: 20120808

REACTIONS (1)
  - BLINDNESS UNILATERAL [None]
